FAERS Safety Report 23329374 (Version 3)
Quarter: 2024Q1

REPORT INFORMATION
  Report Type: Spontaneous
  Country: US (occurrence: None)
  Receive Date: 20231222
  Receipt Date: 20240119
  Transmission Date: 20240409
  Serious: No
  Sender: FDA-Public Use
  Company Number: 2023A284555

PATIENT
  Age: 80 Year
  Sex: Female

DRUGS (4)
  1. BREZTRI [Suspect]
     Active Substance: BUDESONIDE\FORMOTEROL\GLYCOPYRROLATE
     Indication: Emphysema
     Dosage: 160/9/4.8 MCG, 120 INHALATION INHALER, INHALE 2 PUFFS INTO THE LUNGS 2 TIMES A DAY
     Route: 055
     Dates: start: 202101
  2. BREZTRI [Suspect]
     Active Substance: BUDESONIDE\FORMOTEROL\GLYCOPYRROLATE
     Indication: Chronic obstructive pulmonary disease
     Dosage: 160/9/4.8 MCG, 120 INHALATION INHALER, INHALE 2 PUFFS INTO THE LUNGS 2 TIMES A DAY
     Route: 055
     Dates: start: 202101
  3. BREZTRI [Suspect]
     Active Substance: BUDESONIDE\FORMOTEROL\GLYCOPYRROLATE
     Indication: Emphysema
     Dosage: 160/9/4.8 MCG, 120 INHALATION INHALER, INHALE 2 PUFFS INTO THE LUNGS 2 TIMES A DAY
     Route: 055
     Dates: start: 20231127, end: 20231205
  4. BREZTRI [Suspect]
     Active Substance: BUDESONIDE\FORMOTEROL\GLYCOPYRROLATE
     Indication: Chronic obstructive pulmonary disease
     Dosage: 160/9/4.8 MCG, 120 INHALATION INHALER, INHALE 2 PUFFS INTO THE LUNGS 2 TIMES A DAY
     Route: 055
     Dates: start: 20231127, end: 20231205

REACTIONS (4)
  - Dyspnoea [Unknown]
  - Incorrect dose administered by device [Unknown]
  - Device use issue [Unknown]
  - Device delivery system issue [Unknown]

NARRATIVE: CASE EVENT DATE: 20230101
